FAERS Safety Report 6283423-8 (Version None)
Quarter: 2009Q3

REPORT INFORMATION
  Report Type: 
  Country: None (occurrence: None)
  Receive Date: 20090724
  Receipt Date: 20090406
  Transmission Date: 20100115
  Serious: No
  Sender: FDA-Public Use
  Company Number: US-ALEXION-A200900254

PATIENT

DRUGS (6)
  1. SOLIRIS [Suspect]
     Indication: PAROXYSMAL NOCTURNAL HAEMOGLOBINURIA
     Dosage: UNK
     Route: 042
     Dates: start: 20050905
  2. SOLIRIS [Suspect]
     Dosage: 900 MG, UNK
     Route: 042
     Dates: start: 20070815
  3. FOLIC ACID [Concomitant]
     Indication: PAROXYSMAL NOCTURNAL HAEMOGLOBINURIA
     Dosage: 1 MG, QD
     Route: 048
  4. VITAMIN B12                        /00056201/ [Concomitant]
     Dosage: 50 UG, QD
     Route: 048
  5. MULTIVITAMIN                       /00831701/ [Concomitant]
     Dosage: UNK
     Route: 048
  6. COUMADIN [Concomitant]
     Indication: PROPHYLAXIS
     Dosage: 7.5 MG SUN/THURS + 5 MG MON-WED + FRI-SAT
     Route: 048

REACTIONS (2)
  - HAEMOGLOBIN DECREASED [None]
  - NASOPHARYNGITIS [None]
